FAERS Safety Report 9498290 (Version 1)
Quarter: 2013Q3

REPORT INFORMATION
  Report Type: Spontaneous
  Country: CO (occurrence: CO)
  Receive Date: 20130904
  Receipt Date: 20130904
  Transmission Date: 20140515
  Serious: Yes (Other)
  Sender: FDA-Public Use
  Company Number: CO-JNJFOC-20130816792

PATIENT
  Age: 59 Year
  Sex: Male

DRUGS (2)
  1. REMICADE [Suspect]
     Indication: PRODUCT USED FOR UNKNOWN INDICATION
     Route: 042
  2. REMICADE [Suspect]
     Indication: PRODUCT USED FOR UNKNOWN INDICATION
     Dosage: FIFTH ADMINISTRATION
     Route: 042

REACTIONS (4)
  - Hypotension [Unknown]
  - Rash generalised [Unknown]
  - Oxygen saturation decreased [Unknown]
  - Infusion related reaction [Unknown]
